FAERS Safety Report 5771592-5 (Version None)
Quarter: 2008Q2

REPORT INFORMATION
  Report Type: 
  Country: None (occurrence: None)
  Receive Date: 20080612
  Receipt Date: 20080612
  Transmission Date: 20081010
  Serious: Yes (Hospitalization, Disabling)
  Sender: FDA-Public Use
  Company Number: None

PATIENT
  Age: 38 Year
  Sex: Female
  Weight: 58.9676 kg

DRUGS (6)
  1. VYVANSE [Suspect]
     Indication: ATTENTION DEFICIT/HYPERACTIVITY DISORDER
     Dosage: 70MG 1 DAILY ORAL
     Route: 048
     Dates: start: 20070712, end: 20070729
  2. VYVANSE [Suspect]
     Indication: ATTENTION DEFICIT/HYPERACTIVITY DISORDER
     Dosage: 50MG 2 DAILY ORAL
     Route: 048
     Dates: start: 20070730, end: 20070907
  3. CIPROFLOXACIN HCL [Concomitant]
  4. ACYCLOVIR SODIUM [Concomitant]
  5. LIDOCAINE [Concomitant]
  6. AMBIEN (GENERIC ZOLPIDEM) [Concomitant]

REACTIONS (21)
  - ANXIETY [None]
  - BIPOLAR DISORDER [None]
  - CONFUSIONAL STATE [None]
  - DELUSION [None]
  - DEPRESSION [None]
  - DISORIENTATION [None]
  - DISTURBANCE IN ATTENTION [None]
  - DRUG ABUSE [None]
  - DRUG DEPENDENCE [None]
  - FATIGUE [None]
  - FEELING JITTERY [None]
  - HEADACHE [None]
  - HEART RATE INCREASED [None]
  - ILL-DEFINED DISORDER [None]
  - IMPULSIVE BEHAVIOUR [None]
  - INITIAL INSOMNIA [None]
  - MIDDLE INSOMNIA [None]
  - MOOD ALTERED [None]
  - NERVOUSNESS [None]
  - SOCIAL PROBLEM [None]
  - SUICIDAL IDEATION [None]
